FAERS Safety Report 23508281 (Version 1)
Quarter: 2024Q1

REPORT INFORMATION
  Report Type: Spontaneous
  Country: US (occurrence: US)
  Receive Date: 20240209
  Receipt Date: 20240209
  Transmission Date: 20240409
  Serious: No
  Sender: FDA-Public Use
  Company Number: US-IBSA PHARMA INC.-2023IBS000097

PATIENT

DRUGS (1)
  1. TIROSINT-SOL [Suspect]
     Active Substance: LEVOTHYROXINE SODIUM
     Indication: Hypothyroidism
     Dosage: 75 MICROGRAM, QD
     Route: 048
     Dates: start: 202212

REACTIONS (7)
  - Hunger [Unknown]
  - Agitation [Unknown]
  - Hyperthyroidism [Unknown]
  - Fatigue [Unknown]
  - Alopecia [Unknown]
  - Blood thyroid stimulating hormone decreased [Unknown]
  - Product quality issue [Unknown]
